FAERS Safety Report 18501453 (Version 2)
Quarter: 2020Q4

REPORT INFORMATION
  Report Type: Spontaneous
  Country: DE (occurrence: DE)
  Receive Date: 20201113
  Receipt Date: 20201113
  Transmission Date: 20210114
  Serious: Yes (Other)
  Sender: FDA-Public Use
  Company Number: DE-PFIZER INC-2020442907

PATIENT
  Age: 7 Year
  Sex: Male
  Weight: 27.5 kg

DRUGS (14)
  1. LEVETIRACETAM. [Suspect]
     Active Substance: LEVETIRACETAM
     Dosage: UNK
     Dates: end: 2015
  2. PETNIDAN [Suspect]
     Active Substance: ETHOSUXIMIDE
     Indication: EPILEPSY WITH MYOCLONIC-ATONIC SEIZURES
     Dosage: 50 MG/ML: 3.5 - 2 - 3.5 ML DAILY
     Dates: start: 2000, end: 2000
  3. PETNIDAN [Suspect]
     Active Substance: ETHOSUXIMIDE
     Indication: PETIT MAL EPILEPSY
     Dosage: 50 MG/ML: 2.5 - 1.5 - 2.5 ML DAILY (12.4 MG/KG)
     Dates: start: 20200602
  4. LAMOTRIGINE. [Suspect]
     Active Substance: LAMOTRIGINE
     Indication: EPILEPSY WITH MYOCLONIC-ATONIC SEIZURES
  5. ORFIRIL [Suspect]
     Active Substance: VALPROATE SODIUM
     Indication: EPILEPSY WITH MYOCLONIC-ATONIC SEIZURES
     Dosage: UNK
  6. PETNIDAN [Suspect]
     Active Substance: ETHOSUXIMIDE
     Dosage: 50 MG/ML: 3 - 2.5 - 3 ML DAILY
     Dates: start: 2000
  7. PETNIDAN [Suspect]
     Active Substance: ETHOSUXIMIDE
     Dosage: 50 MG/ML: 3 - 2 - 3 ML DAILY (22.4 MG/KG)
  8. PETNIDAN [Suspect]
     Active Substance: ETHOSUXIMIDE
     Dosage: 50 MG/ML: 10 ML DAILY
     Dates: start: 2000, end: 2000
  9. CLOBAZAM. [Suspect]
     Active Substance: CLOBAZAM
     Indication: PETIT MAL EPILEPSY
  10. ORFIRIL [Suspect]
     Active Substance: VALPROATE SODIUM
     Dosage: 2 .5- 0 - 3 CAPSULES DAILY (31.5 MG/KG)
     Dates: start: 20200611
  11. LAMOTRIGINE. [Suspect]
     Active Substance: LAMOTRIGINE
     Indication: PETIT MAL EPILEPSY
     Dosage: UNK
     Dates: end: 2018
  12. CLOBAZAM. [Suspect]
     Active Substance: CLOBAZAM
     Indication: EPILEPSY WITH MYOCLONIC-ATONIC SEIZURES
     Dosage: UNK
     Dates: end: 201912
  13. ORFIRIL [Suspect]
     Active Substance: VALPROATE SODIUM
     Indication: PETIT MAL EPILEPSY
     Dosage: 2 CAPSULES DAILY (33.7 MG/KG)
     Dates: end: 201706
  14. ORFIRIL [Suspect]
     Active Substance: VALPROATE SODIUM
     Indication: EPILEPSY WITH MYOCLONIC-ATONIC SEIZURES
     Dosage: 2 - 0 - 2.5 CAPSULES DAILY (26.9 MG/KG TO 38 MG/KG)
     Dates: start: 201706, end: 20200610

REACTIONS (22)
  - Product use issue [Unknown]
  - Psychomotor hyperactivity [Not Recovered/Not Resolved]
  - Pain in extremity [Recovering/Resolving]
  - Muscle twitching [Recovered/Resolved]
  - Seizure [Not Recovered/Not Resolved]
  - Off label use [Unknown]
  - Anger [Unknown]
  - Sleep disorder [Unknown]
  - Developmental delay [Recovering/Resolving]
  - Epilepsy [Not Recovered/Not Resolved]
  - Aggression [Unknown]
  - Ataxia [Recovered/Resolved]
  - Disturbance in attention [Not Recovered/Not Resolved]
  - Disturbance in attention [Unknown]
  - Aphasia [Recovered/Resolved]
  - Fatigue [Unknown]
  - Social fear [Unknown]
  - Headache [Recovered/Resolved]
  - Insomnia [Unknown]
  - Behaviour disorder [Unknown]
  - Drug ineffective [Unknown]
  - Restlessness [Unknown]
